FAERS Safety Report 8121374-4 (Version None)
Quarter: 2012Q1

REPORT INFORMATION
  Report Type: 
  Country: None (occurrence: None)
  Receive Date: 20120208
  Receipt Date: 20120202
  Transmission Date: 20120608
  Serious: No
  Sender: FDA-Public Use
  Company Number: US-PFIZER INC-2012029277

PATIENT
  Sex: Female

DRUGS (4)
  1. METHADONE [Suspect]
     Dosage: UNK
  2. IODINE [Suspect]
     Dosage: UNK
  3. PENICILLIN G POTASSIUM [Suspect]
     Dosage: UNK
  4. GABAPENTIN [Suspect]
     Dosage: UNK

REACTIONS (1)
  - DRUG HYPERSENSITIVITY [None]
